FAERS Safety Report 16143528 (Version 4)
Quarter: 2019Q3

REPORT INFORMATION
  Report Type: Spontaneous
  Country: US (occurrence: US)
  Receive Date: 20190401
  Receipt Date: 20190828
  Transmission Date: 20191004
  Serious: No
  Sender: FDA-Public Use
  Company Number: US-ELI_LILLY_AND_COMPANY-US201903009433

PATIENT
  Sex: Female

DRUGS (3)
  1. EMGALITY [Suspect]
     Active Substance: GALCANEZUMAB-GNLM
     Indication: MIGRAINE
     Dosage: 240 MG, UNKNOWN (LOADING DOSE)
     Route: 058
     Dates: start: 20190410, end: 20190410
  2. DIHYDROERGOTAMINE [Concomitant]
     Active Substance: DIHYDROERGOTAMINE
     Dosage: UNK, UNKNOWN
     Route: 065
  3. PROPRANOLOL 3MM [Concomitant]
     Dosage: UNK, UNKNOWN
     Route: 065

REACTIONS (2)
  - Migraine [Unknown]
  - Vision blurred [Recovered/Resolved]

NARRATIVE: CASE EVENT DATE: 20190412
